FAERS Safety Report 25584163 (Version 1)
Quarter: 2025Q3

REPORT INFORMATION
  Report Type: Report from Study
  Country: US (occurrence: US)
  Receive Date: 20250721
  Receipt Date: 20250721
  Transmission Date: 20251021
  Serious: Yes (Disabling)
  Sender: GILEAD
  Company Number: US-GILEAD-2025-0721380

PATIENT
  Sex: Female

DRUGS (2)
  1. AZTREONAM LYSINE [Suspect]
     Active Substance: AZTREONAM LYSINE
     Indication: Cystic fibrosis
     Dosage: 75MG INHALATION 3 TIMES A DAY FOR 28 DAYS ON AND 28 DAYS OF
     Route: 055
     Dates: start: 20200317
  2. ALYFTREK [Suspect]
     Active Substance: DEUTIVACAFTOR\TEZACAFTOR\VANZACAFTOR
     Indication: Cystic fibrosis
     Dosage: ONE-HALF TABLET BY MOUTH 1 TIME A DAY.COMPLETE WEEKLY LFT LAB MONITORING.
     Route: 048
     Dates: start: 20250401

REACTIONS (1)
  - Liver function test increased [Unknown]
